FAERS Safety Report 21605634 (Version 1)
Quarter: 2022Q4

REPORT INFORMATION
  Report Type: Report from Study
  Country: US (occurrence: US)
  Receive Date: 20221116
  Receipt Date: 20221116
  Transmission Date: 20230113
  Serious: Yes (Death)
  Sender: FDA-Public Use
  Company Number: US-ABBVIE-4202044

PATIENT
  Sex: Male

DRUGS (1)
  1. VENCLEXTA [Suspect]
     Active Substance: VENETOCLAX
     Indication: Plasma cell leukaemia
     Dosage: TAKE 4 TABLET(S) BY MOUTH DAILY DO NOT CRUSH, CHEW OR SPLIT. SWALLOW WHOLE?FORM STRENGTH: 100 MIL...
     Route: 048

REACTIONS (2)
  - Death [Fatal]
  - Off label use [Unknown]
